FAERS Safety Report 16362261 (Version 3)
Quarter: 2020Q3

REPORT INFORMATION
  Report Type: Report from Study
  Country: None (occurrence: CN)
  Receive Date: 20190528
  Receipt Date: 20200714
  Transmission Date: 20201102
  Serious: Yes (Hospitalization)
  Sender: FDA-Public Use
  Company Number: CN-ABBVIE-19K-035-2797377-00

PATIENT
  Age: 69 Year
  Sex: Female
  Weight: 60 kg

DRUGS (16)
  1. LOXOPROFEN SODIUM [Concomitant]
     Active Substance: LOXOPROFEN SODIUM
     Indication: ANTIINFLAMMATORY THERAPY
     Route: 048
     Dates: start: 20190103
  2. DIACEREIN [Concomitant]
     Active Substance: DIACEREIN
     Indication: BONE DISORDER
     Route: 048
     Dates: start: 20190103
  3. CALCITRIOL. [Concomitant]
     Active Substance: CALCITRIOL
     Indication: BONE METABOLISM DISORDER
     Route: 048
     Dates: start: 20190105
  4. SODIUM HYALURONATE [Concomitant]
     Active Substance: HYALURONATE SODIUM
     Indication: OSTEOARTHRITIS
     Route: 058
     Dates: start: 20190109
  5. COMPOUND BETAMETHASONE [Concomitant]
     Indication: ANTIINFLAMMATORY THERAPY
  6. OSELTAMIVIR PHOSPHATE. [Concomitant]
     Active Substance: OSELTAMIVIR PHOSPHATE
     Indication: ANTIVIRAL TREATMENT
     Route: 048
     Dates: start: 20190117
  7. MACROGOL 4000 [Concomitant]
     Active Substance: POLYETHYLENE GLYCOL 4000
     Indication: LAXATIVE SUPPORTIVE CARE
     Dosage: ONE PACK ONCE
     Route: 048
     Dates: start: 20190103
  8. COLLIDAL BISMUTH PECTIN [Concomitant]
     Indication: PROPHYLAXIS
     Dosage: ONE PACKAGE ONCE
     Dates: start: 20190110
  9. LANSOPRAZOLE. [Concomitant]
     Active Substance: LANSOPRAZOLE
     Indication: PROPHYLAXIS
     Dates: start: 20190103
  10. COMPOUND BETAMETHASONE [Concomitant]
     Indication: OSTEOARTHRITIS
     Route: 058
     Dates: start: 20190109
  11. COMPOUND BETAMETHASONE [Concomitant]
     Indication: STEROID THERAPY
  12. TOTAL GLUCOSIDES OF WHITE PAEONY CAPSULES [Concomitant]
     Indication: IMMUNE SYSTEM DISORDER
     Route: 048
     Dates: start: 20190110
  13. POTASSIUM CITRATE. [Concomitant]
     Active Substance: POTASSIUM CITRATE
     Indication: OSTEOARTHRITIS
     Dosage: ONE PACK ONCE
     Route: 048
     Dates: start: 20190106
  14. HUMIRA [Suspect]
     Active Substance: ADALIMUMAB
     Indication: RHEUMATOID ARTHRITIS
     Route: 058
     Dates: start: 20190202, end: 20200405
  15. CALCIUM CARBONATE WITH D3 [Concomitant]
     Active Substance: CALCIUM CARBONATE\CHOLECALCIFEROL
     Indication: BONE METABOLISM DISORDER
     Route: 048
     Dates: start: 20190105
  16. LOXOPROFEN SODIUM [Concomitant]
     Active Substance: LOXOPROFEN SODIUM
     Indication: ANALGESIC THERAPY

REACTIONS (4)
  - Osteoporotic fracture [Recovered/Resolved]
  - Electrolyte imbalance [Recovered/Resolved]
  - Compression fracture [Recovered/Resolved]
  - Pneumonia bacterial [Recovered/Resolved]

NARRATIVE: CASE EVENT DATE: 20190410
